FAERS Safety Report 22093495 (Version 1)
Quarter: 2023Q1

REPORT INFORMATION
  Report Type: Spontaneous
  Country: JP (occurrence: None)
  Receive Date: 20230314
  Receipt Date: 20230314
  Transmission Date: 20230418
  Serious: Yes (Life-Threatening, Other)
  Sender: FDA-Public Use
  Company Number: 2022A188304

PATIENT
  Age: 61 Year
  Sex: Female

DRUGS (4)
  1. IMFINZI [Suspect]
     Active Substance: DURVALUMAB
     Indication: Small cell lung cancer
     Route: 041
     Dates: start: 2022, end: 2022
  2. IMFINZI [Suspect]
     Active Substance: DURVALUMAB
     Indication: Small cell lung cancer
     Dosage: DOSE UNKNOWN
     Route: 041
     Dates: start: 2022
  3. CARBOPLATIN [Concomitant]
     Active Substance: CARBOPLATIN
     Indication: Small cell lung cancer
     Dosage: AUC 4
     Dates: start: 2022
  4. ETOPOSIDE [Concomitant]
     Active Substance: ETOPOSIDE
     Indication: Small cell lung cancer
     Dosage: DAY 1, DAY 2, AND DAY 3 OF EACH COURSE
     Route: 065
     Dates: start: 2022

REACTIONS (7)
  - Neutrophil count decreased [Unknown]
  - Platelet count decreased [Unknown]
  - Pneumonitis [Not Recovered/Not Resolved]
  - Interstitial lung disease [Unknown]
  - Hyperthyroidism [Unknown]
  - Hypothyroidism [Unknown]
  - Silent thyroiditis [Unknown]

NARRATIVE: CASE EVENT DATE: 20220401
